FAERS Safety Report 8924172 (Version 1)
Quarter: 2012Q4

REPORT INFORMATION
  Report Type: 
  Country: US (occurrence: US)
  Receive Date: 20121126
  Receipt Date: 20121126
  Transmission Date: 20130627
  Serious: No
  Sender: FDA-Public Use
  Company Number: US-MYLANLABS-2012S1022028

PATIENT
  Age: 29 Year
  Sex: Male

DRUGS (2)
  1. VALACYCLOVIR [Suspect]
     Indication: GENITAL HERPES
     Route: 048
     Dates: start: 201208
  2. PRILOSEC [Concomitant]
     Route: 048

REACTIONS (1)
  - Dysgeusia [Not Recovered/Not Resolved]
